FAERS Safety Report 18234642 (Version 1)
Quarter: 2020Q3

REPORT INFORMATION
  Report Type: Spontaneous
  Country: US (occurrence: US)
  Receive Date: 20200904
  Receipt Date: 20200904
  Transmission Date: 20201103
  Serious: Yes (Hospitalization)
  Sender: FDA-Public Use
  Company Number: US-PFIZER INC-2020341060

PATIENT
  Age: 75 Year
  Sex: Female

DRUGS (1)
  1. HYDROMORPHONE HYDROCHLORIDE. [Suspect]
     Active Substance: HYDROMORPHONE HYDROCHLORIDE
     Indication: PAIN MANAGEMENT
     Dosage: 4 MG (EVERY 3 HOURS)
     Route: 042

REACTIONS (3)
  - Respiratory rate decreased [Unknown]
  - Oxygen saturation decreased [Unknown]
  - Respiratory depression [Unknown]
